FAERS Safety Report 9173233 (Version 1)
Quarter: 2013Q1

REPORT INFORMATION
  Report Type: Spontaneous
  Country: US (occurrence: None)
  Receive Date: 20130314
  Receipt Date: 20130314
  Transmission Date: 20140127
  Serious: Yes (Hospitalization)
  Sender: FDA-Public Use
  Company Number: 1631082

PATIENT
  Age: 72 Year
  Sex: Female

DRUGS (4)
  1. CARBOPLATIN [Suspect]
  2. PACLITAXEL [Suspect]
  3. CETUXIMAB [Suspect]
  4. THERAPEUTIC RADIOPHARMACEUTICALS [Concomitant]

REACTIONS (6)
  - Confusional state [None]
  - Paranoia [None]
  - Aggression [None]
  - Attention deficit/hyperactivity disorder [None]
  - Disorientation [None]
  - Delirium [None]
